FAERS Safety Report 8546615-0 (Version None)
Quarter: 2012Q3

REPORT INFORMATION
  Report Type: 
  Country: None (occurrence: None)
  Receive Date: 20120727
  Receipt Date: 20120123
  Transmission Date: 20120928
  Serious: No
  Sender: FDA-Public Use
  Company Number: US-ASTRAZENECA-2012SE00187

PATIENT
  Age: 78 Year
  Sex: Female
  Weight: 45.4 kg

DRUGS (7)
  1. MULTIVITAMIN [Concomitant]
     Indication: AGE-RELATED MACULAR DEGENERATION
  2. LEYYLTHYROXINE [Concomitant]
     Indication: HYPERTHYROIDISM
  3. AROCEP [Concomitant]
  4. MEGESTROL ACETATE [Concomitant]
     Indication: APPETITE DISORDER
  5. SEROQUEL [Suspect]
     Indication: SCHIZOPHRENIA
     Dosage: 25 MG TO TAKE 2 TABLETS AT BEDTIME AND 1 TABLET IN EVERYDAY
     Route: 048
  6. AMENDA [Concomitant]
  7. VITAMIN B-12 [Concomitant]

REACTIONS (3)
  - DEMENTIA [None]
  - SLUGGISHNESS [None]
  - SOMNOLENCE [None]
